FAERS Safety Report 8576138-4 (Version None)
Quarter: 2012Q3

REPORT INFORMATION
  Report Type: 
  Country: None (occurrence: None)
  Receive Date: 20120807
  Receipt Date: 20120801
  Transmission Date: 20120928
  Serious: Yes (Other)
  Sender: FDA-Public Use
  Company Number: US-JNJFOC-20120710180

PATIENT
  Sex: Male
  Weight: 83.92 kg

DRUGS (4)
  1. XARELTO [Suspect]
     Route: 048
     Dates: start: 20120731
  2. XARELTO [Suspect]
     Route: 048
     Dates: start: 20120601, end: 20120728
  3. XARELTO [Suspect]
     Indication: CEREBROVASCULAR ACCIDENT PROPHYLAXIS
     Route: 048
     Dates: start: 20120601, end: 20120728
  4. XARELTO [Suspect]
     Indication: ATRIAL FIBRILLATION
     Route: 048
     Dates: start: 20120731

REACTIONS (5)
  - RENAL SURGERY [None]
  - DRUG DOSE OMISSION [None]
  - INAPPROPRIATE SCHEDULE OF DRUG ADMINISTRATION [None]
  - ASTHENIA [None]
  - BLOOD URINE PRESENT [None]
